FAERS Safety Report 9654787 (Version 1)
Quarter: 2013Q4

REPORT INFORMATION
  Report Type: Spontaneous
  Country: US (occurrence: US)
  Receive Date: 20131029
  Receipt Date: 20131029
  Transmission Date: 20140711
  Serious: Yes (Life-Threatening, Other)
  Sender: FDA-Public Use
  Company Number: US-NAPPMUNDI-USA-2012-0089016

PATIENT
  Sex: Male

DRUGS (4)
  1. OXYCONTIN TABLETS [Suspect]
     Indication: PRODUCT USED FOR UNKNOWN INDICATION
  2. COCAINE [Suspect]
     Indication: DRUG ABUSE
  3. PERCOCET /00446701/ [Suspect]
     Indication: PRODUCT USED FOR UNKNOWN INDICATION
  4. VICODIN [Suspect]
     Indication: PRODUCT USED FOR UNKNOWN INDICATION

REACTIONS (3)
  - Overdose [Recovered/Resolved]
  - Drug dependence [Unknown]
  - Substance abuse [Unknown]
